FAERS Safety Report 11127157 (Version 3)
Quarter: 2016Q1

REPORT INFORMATION
  Report Type: Report from Study
  Country: US (occurrence: US)
  Receive Date: 20150521
  Receipt Date: 20160115
  Transmission Date: 20160525
  Serious: Yes (Other)
  Sender: FDA-Public Use
  Company Number: US-AMGEN-USASP2015048321

PATIENT
  Age: 35 Year
  Sex: Female
  Weight: 87.98 kg

DRUGS (4)
  1. FOLIC ACID. [Concomitant]
     Active Substance: FOLIC ACID
     Dosage: ONE SHOT, QD
     Dates: start: 20150110
  2. FERROUS                            /00023501/ [Concomitant]
     Dosage: 1000 MUG, QD
     Dates: start: 201502
  3. PREDNISONE. [Concomitant]
     Active Substance: PREDNISONE
     Dosage: 30 MG, QD
     Dates: start: 20150602
  4. ENBREL [Suspect]
     Active Substance: ETANERCEPT
     Indication: RHEUMATOID ARTHRITIS
     Dosage: 50 MG, QWK
     Route: 065
     Dates: start: 20130720, end: 20150708

REACTIONS (4)
  - High risk pregnancy [Unknown]
  - Back pain [Not Recovered/Not Resolved]
  - Maternal exposure during pregnancy [Unknown]
  - Anaemia [Recovered/Resolved]

NARRATIVE: CASE EVENT DATE: 2015
